FAERS Safety Report 25543166 (Version 1)
Quarter: 2025Q3

REPORT INFORMATION
  Report Type: Spontaneous
  Country: GB (occurrence: GB)
  Receive Date: 20250711
  Receipt Date: 20250711
  Transmission Date: 20251020
  Serious: Yes (Other)
  Sender: IRON THERAPEUTICS
  Company Number: None

PATIENT
  Age: 24 Year
  Sex: Female
  Weight: 48 kg

DRUGS (1)
  1. IRON [Suspect]
     Active Substance: IRON
     Indication: Product used for unknown indication
     Route: 065
     Dates: start: 20250627, end: 20250627

REACTIONS (1)
  - Anaphylactic reaction [Recovered/Resolved]

NARRATIVE: CASE EVENT DATE: 20250627
